FAERS Safety Report 4498691-2 (Version None)
Quarter: 2004Q3

REPORT INFORMATION
  Report Type: 
  Country: None (occurrence: None)
  Receive Date: 20040927
  Receipt Date: 20040621
  Transmission Date: 20050211
  Serious: No
  Sender: FDA-Public Use
  Company Number: USA040670715

PATIENT
  Age: 8 Year
  Sex: Male
  Weight: 34 kg

DRUGS (4)
  1. STRATTERA [Suspect]
     Indication: ATTENTION DEFICIT/HYPERACTIVITY DISORDER
     Dosage: 10 MG DAY
     Dates: start: 20040508
  2. VITAMIN C [Concomitant]
  3. VITAMIN E [Concomitant]
  4. MULTI-VITAMIN [Concomitant]

REACTIONS (4)
  - ANGER [None]
  - DISTURBANCE IN ATTENTION [None]
  - DRUG EFFECT DECREASED [None]
  - FATIGUE [None]
